FAERS Safety Report 4686031-5 (Version None)
Quarter: 2005Q2

REPORT INFORMATION
  Report Type: 
  Country: None (occurrence: None)
  Receive Date: 20050606
  Receipt Date: 20050520
  Transmission Date: 20051028
  Serious: Yes (Death)
  Sender: FDA-Public Use
  Company Number: 2005BI007484

PATIENT
  Age: 41 Year
  Sex: Female

DRUGS (13)
  1. AVONEX [Suspect]
     Indication: MULTIPLE SCLEROSIS
     Dosage: QW;IM
     Route: 030
     Dates: start: 20030201, end: 20041213
  2. WELLBUTRIN XL [Concomitant]
  3. ALEVE [Concomitant]
  4. METHYLPREDNISOLONE [Concomitant]
  5. ZOCOR [Concomitant]
  6. XANAX [Concomitant]
  7. FOLIC ACID [Concomitant]
  8. STUDY DRUG (PLACEBO OR METHOTREXATE) [Concomitant]
  9. ACIPHEX [Concomitant]
  10. KLONOPIN [Concomitant]
  11. CIDER VINEGAR [Concomitant]
  12. CALCIUM WITH VITAMIN D [Concomitant]
  13. M.V.I. [Concomitant]

REACTIONS (1)
  - ACUTE MYOCARDIAL INFARCTION [None]
